FAERS Safety Report 19597286 (Version 3)
Quarter: 2021Q3

REPORT INFORMATION
  Report Type: Report from Study
  Country: US (occurrence: US)
  Receive Date: 20210723
  Receipt Date: 20210805
  Transmission Date: 20211014
  Serious: Yes (Other)
  Sender: FDA-Public Use
  Company Number: US-AMGEN-USASL2021110625

PATIENT
  Sex: Female

DRUGS (3)
  1. ENBREL [Suspect]
     Active Substance: ETANERCEPT
     Indication: ARTHRITIS REACTIVE
     Dosage: UNK
     Route: 065
  2. ENBREL [Suspect]
     Active Substance: ETANERCEPT
     Dosage: UNK
     Route: 065
     Dates: end: 2011
  3. ENBREL [Suspect]
     Active Substance: ETANERCEPT
     Indication: OFF LABEL USE
     Dosage: UNK
     Route: 065
     Dates: start: 2007, end: 2008

REACTIONS (6)
  - Sjogren^s syndrome [Unknown]
  - Myasthenia gravis [Unknown]
  - Off label use [Unknown]
  - Brain neoplasm [Unknown]
  - Arthritis reactive [Unknown]
  - Food poisoning [Unknown]

NARRATIVE: CASE EVENT DATE: 2016
